FAERS Safety Report 19126914 (Version 1)
Quarter: 2021Q2

REPORT INFORMATION
  Report Type: Spontaneous
  Country: CN (occurrence: CN)
  Receive Date: 20210412
  Receipt Date: 20210412
  Transmission Date: 20210717
  Serious: Yes (Hospitalization, Other)
  Sender: FDA-Public Use
  Company Number: CN-BAXTER-2021BAX006759

PATIENT
  Age: 62 Year
  Sex: Female
  Weight: 63 kg

DRUGS (6)
  1. ENDOXAN [Suspect]
     Active Substance: CYCLOPHOSPHAMIDE
     Indication: BREAST CANCER STAGE II
     Dosage: ENDOXAN 0.95 G + 500 ML 0.9% SODIUM CHLORIDE 500 ML (GLASS BOTTLE)
     Route: 041
     Dates: start: 20210219, end: 20210219
  2. 0.9% SODIUM CHLORIDE INJECTION [Suspect]
     Active Substance: SODIUM CHLORIDE
     Indication: MEDICATION DILUTION
     Dosage: ENDOXAN 0.95 G + 500 ML 0.9% SODIUM CHLORIDE (GLASS BOTTLE)
     Route: 041
     Dates: start: 20210219, end: 20210219
  3. AOMINGRUN [Suspect]
     Active Substance: DOCETAXEL
     Indication: TRIPLE NEGATIVE BREAST CANCER
  4. AOMINGRUN [Suspect]
     Active Substance: DOCETAXEL
     Indication: BREAST CANCER STAGE II
     Dosage: AOMINGRUN 120 MG + 500 ML 0.9% SODIUM CHLORIDE (GLASS BOTTLE)
     Route: 041
     Dates: start: 20210219, end: 20210219
  5. ENDOXAN [Suspect]
     Active Substance: CYCLOPHOSPHAMIDE
     Indication: TRIPLE NEGATIVE BREAST CANCER
  6. 0.9% SODIUM CHLORIDE INJECTION [Suspect]
     Active Substance: SODIUM CHLORIDE
     Dosage: AOMINGRUN 120 MG + 500 ML 0.9% SODIUM CHLORIDE (GLASS BOTTLE)
     Route: 041
     Dates: start: 20210219, end: 20210219

REACTIONS (3)
  - Neutrophil count decreased [Recovering/Resolving]
  - Leukopenia [Recovering/Resolving]
  - Myelosuppression [Unknown]

NARRATIVE: CASE EVENT DATE: 20210305
